FAERS Safety Report 8837061 (Version 1)
Quarter: 2012Q4

REPORT INFORMATION
  Report Type: Spontaneous
  Country: US (occurrence: None)
  Receive Date: 20121011
  Receipt Date: 20121011
  Transmission Date: 20130627
  Serious: Yes (Hospitalization, Other)
  Sender: FDA-Public Use
  Company Number: None

PATIENT
  Age: 21 Year
  Sex: Female
  Weight: 63.5 kg

DRUGS (1)
  1. MIRENA [Suspect]
     Indication: CONTRACEPTION
     Dosage: 1 mirena iud every 10 yrs intra-uterine
     Route: 015
     Dates: start: 20080815, end: 20080930

REACTIONS (5)
  - Muscle spasms [None]
  - Haemorrhage [None]
  - Uterine perforation [None]
  - Scar [None]
  - Post procedural discomfort [None]
